FAERS Safety Report 7147937-0 (Version None)
Quarter: 2010Q4

REPORT INFORMATION
  Report Type: 
  Country: None (occurrence: None)
  Receive Date: 20101209
  Receipt Date: 20101129
  Transmission Date: 20110411
  Serious: Yes (Hospitalization)
  Sender: FDA-Public Use
  Company Number: US-JNJFOC-20101109135

PATIENT
  Age: 42 Year
  Sex: Female
  Weight: 86.7 kg

DRUGS (14)
  1. ACETAMINOPHEN [Suspect]
     Route: 048
  2. ACETAMINOPHEN [Suspect]
     Indication: PRODUCT USED FOR UNKNOWN INDICATION
     Route: 048
  3. ETHANOL [Suspect]
     Indication: PRODUCT USED FOR UNKNOWN INDICATION
  4. LORAZEPAM [Suspect]
     Indication: PRODUCT USED FOR UNKNOWN INDICATION
  5. ROBITUSSIN W/CODEINE [Suspect]
     Indication: PRODUCT USED FOR UNKNOWN INDICATION
  6. ALDACTAZIDE [Concomitant]
  7. ASTELIN [Concomitant]
  8. CYMBALTA [Concomitant]
  9. LORATADINE [Concomitant]
  10. ROBITUSSIN (DEXTROMETHORPHAN) [Concomitant]
  11. ALBUTEROL [Concomitant]
  12. AZACITIDINE [Concomitant]
  13. DEXTROAMPHETAMINE [Concomitant]
  14. IBUPROFEN [Concomitant]

REACTIONS (6)
  - ENCEPHALOPATHY [None]
  - LIVER FUNCTION TEST ABNORMAL [None]
  - METABOLIC ACIDOSIS [None]
  - MULTIPLE DRUG OVERDOSE [None]
  - URINARY INCONTINENCE [None]
  - VOMITING [None]
